FAERS Safety Report 6443958-1 (Version None)
Quarter: 2009Q4

REPORT INFORMATION
  Report Type: 
  Country: None (occurrence: None)
  Receive Date: 20091113
  Receipt Date: 20091027
  Transmission Date: 20100525
  Serious: Yes (Other)
  Sender: FDA-Public Use
  Company Number: 1000009932

PATIENT
  Age: 30 Year
  Weight: 87 kg

DRUGS (1)
  1. CELEXA [Suspect]
     Dosage: 10 MG (10 MG, 1 IN 1 D),ORAL
     Route: 048

REACTIONS (4)
  - PETECHIAE [None]
  - PRURITUS [None]
  - RASH [None]
  - VOMITING [None]
